FAERS Safety Report 23546417 (Version 1)
Quarter: 2024Q1

REPORT INFORMATION
  Report Type: Spontaneous
  Country: DE (occurrence: DE)
  Receive Date: 20240220
  Receipt Date: 20240220
  Transmission Date: 20240410
  Serious: Yes (Hospitalization, Other)
  Sender: FDA-Public Use
  Company Number: DE-ALKEM LABORATORIES LIMITED-DE-ALKEM-2024-02355

PATIENT
  Age: 23 Year
  Sex: Female

DRUGS (1)
  1. ARIPIPRAZOLE [Interacting]
     Active Substance: ARIPIPRAZOLE
     Indication: Schizophrenia
     Dosage: 30 MILLIGRAM, TABLET
     Route: 065

REACTIONS (4)
  - Acute psychosis [Unknown]
  - Drug level decreased [Unknown]
  - Herpes zoster [Unknown]
  - Drug interaction [Unknown]
